FAERS Safety Report 17583384 (Version 2)
Quarter: 2020Q1

REPORT INFORMATION
  Report Type: Spontaneous
  Country: BR (occurrence: BR)
  Receive Date: 20200326
  Receipt Date: 20200330
  Transmission Date: 20200409
  Serious: Yes (Other)
  Sender: FDA-Public Use
  Company Number: BR-AMGEN-BRASP2014008100

PATIENT
  Age: 64 Year
  Sex: Female
  Weight: 84 kg

DRUGS (7)
  1. BRASART [Concomitant]
     Active Substance: VALSARTAN
     Indication: HYPERTENSION
     Dosage: 320 MILLIGRAM, QD (1 TABLET DAILY)
  2. ENBREL [Suspect]
     Active Substance: ETANERCEPT
     Dosage: UNK
     Route: 065
     Dates: start: 20160701
  3. ENBREL [Suspect]
     Active Substance: ETANERCEPT
     Indication: RHEUMATOID ARTHRITIS
     Dosage: 50 MG, ONCE WEEKLY
     Route: 030
     Dates: start: 201401
  4. OMEPRAZOLE. [Concomitant]
     Active Substance: OMEPRAZOLE
     Dosage: 50 MILLIGRAM, QD (1 TABLET)
  5. BRASART [Concomitant]
     Active Substance: VALSARTAN
     Dosage: 320 MG, DAILY (1 TABLET DAILY)
  6. INDAPEN [INDAPAMIDE] [Concomitant]
     Indication: HYPERTENSION
     Dosage: 0.25 MILLIGRAM, QD  (1 TABLET DAILY)
  7. OMEPRAZOLE. [Concomitant]
     Active Substance: OMEPRAZOLE
     Dosage: 50 MG, DAILY (1 TABLET)

REACTIONS (10)
  - Incorrect route of product administration [Unknown]
  - Pain in extremity [Unknown]
  - Gait inability [Unknown]
  - Cartilage injury [Unknown]
  - Ligament sprain [Unknown]
  - Arthritis infective [Unknown]
  - Gait disturbance [Unknown]
  - Off label use [Unknown]
  - Joint swelling [Unknown]
  - Malaise [Unknown]

NARRATIVE: CASE EVENT DATE: 201401
